FAERS Safety Report 22529747 (Version 1)
Quarter: 2023Q2

REPORT INFORMATION
  Report Type: Spontaneous
  Country: SG (occurrence: SG)
  Receive Date: 20230607
  Receipt Date: 20230607
  Transmission Date: 20230722
  Serious: Yes (Hospitalization, Other)
  Sender: FDA-Public Use
  Company Number: SG-BAYER-2023A075233

PATIENT

DRUGS (1)
  1. FINERENONE [Suspect]
     Active Substance: FINERENONE
     Dosage: UNK
     Dates: start: 202211

REACTIONS (2)
  - Hospitalisation [None]
  - Atrial fibrillation [None]

NARRATIVE: CASE EVENT DATE: 20221201
